FAERS Safety Report 13325143 (Version 1)
Quarter: 2017Q1

REPORT INFORMATION
  Report Type: Spontaneous
  Country: CN (occurrence: CN)
  Receive Date: 20170310
  Receipt Date: 20170310
  Transmission Date: 20170428
  Serious: Yes (Other)
  Sender: FDA-Public Use
  Company Number: PHHY2017CN033885

PATIENT
  Age: 51 Year
  Sex: Male

DRUGS (2)
  1. TELBIVUDINE [Suspect]
     Active Substance: TELBIVUDINE
     Indication: CHRONIC HEPATITIS B
     Dosage: UNK
     Route: 065
  2. TENOFOVIR DISOPROXIL [Concomitant]
     Active Substance: TENOFOVIR DISOPROXIL
     Indication: CHRONIC HEPATITIS B
     Route: 065

REACTIONS (6)
  - Mitochondrial toxicity [Unknown]
  - Lactic acidosis [Recovered/Resolved]
  - Hepatic cirrhosis [Unknown]
  - Myalgia [Unknown]
  - Chronic hepatitis B [Unknown]
  - Rhabdomyolysis [Unknown]
